FAERS Safety Report 14923174 (Version 5)
Quarter: 2018Q3

REPORT INFORMATION
  Report Type: Report from Study
  Country: US (occurrence: US)
  Receive Date: 20180522
  Receipt Date: 20180917
  Transmission Date: 20181010
  Serious: Yes (Hospitalization, Other)
  Sender: FDA-Public Use
  Company Number: US-ROCHE-2125124

PATIENT
  Age: 69 Year
  Sex: Female
  Weight: 61.29 kg

DRUGS (2)
  1. OCREVUS [Suspect]
     Active Substance: OCRELIZUMAB
     Dosage: SECOND HALF DOSE
     Route: 042
     Dates: start: 201707
  2. OCREVUS [Suspect]
     Active Substance: OCRELIZUMAB
     Indication: RELAPSING MULTIPLE SCLEROSIS
     Dosage: ONGOING: UNKNOWN?FIRST HALF DOSE
     Route: 042
     Dates: start: 20170717

REACTIONS (4)
  - Appendicitis perforated [Recovered/Resolved]
  - Pain [Recovered/Resolved]
  - Appendicitis perforated [Recovered/Resolved]
  - Immunodeficiency [Not Recovered/Not Resolved]

NARRATIVE: CASE EVENT DATE: 201711
